FAERS Safety Report 22270472 (Version 1)
Quarter: 2023Q2

REPORT INFORMATION
  Report Type: Other
  Country: None (occurrence: BR)
  Receive Date: 20230501
  Receipt Date: 20230501
  Transmission Date: 20230722
  Serious: Yes (Other)
  Sender: FDA-Public Use
  Company Number: BR-Larken Laboratories, Inc.-2140972

PATIENT
  Age: 21 Year
  Sex: Female
  Weight: 56.818 kg

DRUGS (1)
  1. DOXYCYCLINE HYCLATE [Suspect]
     Active Substance: DOXYCYCLINE HYCLATE
     Indication: Skin disorder
     Route: 048

REACTIONS (1)
  - Gingival discolouration [Recovered/Resolved]
